FAERS Safety Report 9695972 (Version 3)
Quarter: 2013Q4

REPORT INFORMATION
  Report Type: Report from Study
  Country: JP (occurrence: JP)
  Receive Date: 20131119
  Receipt Date: 20131125
  Transmission Date: 20140711
  Serious: Yes (Hospitalization)
  Sender: FDA-Public Use
  Company Number: JP-BRISTOL-MYERS SQUIBB COMPANY-19734888

PATIENT
  Age: 62 Year
  Sex: Male

DRUGS (13)
  1. ABILIFY [Suspect]
     Indication: BIPOLAR I DISORDER
     Dosage: 04OCT13-17OCT13?18OCT13-25OCT13:30MG
     Route: 048
     Dates: start: 20131004
  2. POLYCARBOPHIL CALCIUM [Concomitant]
     Dates: end: 20131025
  3. MOSAPRIDE CITRATE [Concomitant]
     Dates: end: 20131025
  4. BIPERIDEN [Concomitant]
     Dates: start: 20130919, end: 20131025
  5. NAFTOPIDIL [Concomitant]
     Dates: end: 20131025
  6. BIO-THREE [Concomitant]
     Dates: end: 20131025
  7. LOXOPROFEN SODIUM [Concomitant]
     Dates: start: 20130926
  8. GENTAMICIN SULFATE [Concomitant]
     Dates: start: 20131004
  9. NITRAZEPAM [Concomitant]
     Dates: start: 20131010
  10. OLANZAPINE [Concomitant]
     Dates: start: 20131010
  11. BROTIZOLAM [Concomitant]
     Dates: end: 20131016
  12. FLUNITRAZEPAM [Concomitant]
     Dates: start: 20130919, end: 20131009
  13. DULOXETINE HCL [Concomitant]

REACTIONS (3)
  - Gastric ulcer [Unknown]
  - Anaemia [Unknown]
  - Bipolar I disorder [Unknown]
